FAERS Safety Report 5465287-5 (Version None)
Quarter: 2007Q3

REPORT INFORMATION
  Report Type: 
  Country: None (occurrence: None)
  Receive Date: 20070924
  Receipt Date: 20070914
  Transmission Date: 20080115
  Serious: Yes (Other)
  Sender: FDA-Public Use
  Company Number: PHBS2007BR15186

PATIENT
  Age: 60 Year
  Sex: Female
  Weight: 92 kg

DRUGS (8)
  1. CODATEN [Suspect]
     Indication: PAIN IN EXTREMITY
     Dosage: DICLO 50 / COD 50 MG, Q8H
     Route: 048
     Dates: start: 20070913
  2. ARA [Concomitant]
     Indication: HYPERTENSION
     Dosage: 50 MG, QD
     Route: 048
  3. INSULIN [Concomitant]
     Indication: DIABETES MELLITUS
     Dosage: UNK, BID
  4. METFORMIN [Concomitant]
     Indication: DIABETES MELLITUS
     Dosage: 800 MG, TID
     Route: 048
  5. SIMVASTATIN [Concomitant]
     Indication: BLOOD CHOLESTEROL
     Dosage: 50 MG, QD
     Route: 048
  6. EUTIROX [Concomitant]
     Indication: THYROID DISORDER
     Dosage: 50 MG, QD
  7. FRONTAL [Concomitant]
     Indication: DEPRESSION
     Dosage: 0.5 MG, QD
     Route: 048
  8. HIXIZINE [Concomitant]
     Indication: DRUG HYPERSENSITIVITY
     Dosage: 25 MG, QD
     Route: 048

REACTIONS (5)
  - DYSPHONIA [None]
  - DYSPNOEA [None]
  - ERYTHEMA [None]
  - NASOPHARYNGITIS [None]
  - URTICARIA [None]
